FAERS Safety Report 15504540 (Version 1)
Quarter: 2018Q4

REPORT INFORMATION
  Report Type: Spontaneous
  Country: US (occurrence: US)
  Receive Date: 20181009
  Receipt Date: 20181009
  Transmission Date: 20190205
  Serious: No
  Sender: FDA-Public Use
  Company Number: None

PATIENT
  Age: 74 Year
  Sex: Male
  Weight: 76.95 kg

DRUGS (29)
  1. FAMOTIDINE. [Concomitant]
     Active Substance: FAMOTIDINE
  2. FENTANYL. [Concomitant]
     Active Substance: FENTANYL
  3. GLUSOSAMINE [Concomitant]
  4. ASPRIN [Concomitant]
     Active Substance: ASPIRIN
  5. BROMELAIN [Concomitant]
     Active Substance: BROMELAINS
  6. CA [Concomitant]
  7. FE [Concomitant]
     Active Substance: IRON
  8. SINGULAIR [Concomitant]
     Active Substance: MONTELUKAST SODIUM
  9. STALEVO [Concomitant]
     Active Substance: CARBIDOPA\ENTACAPONE\LEVODOPA
  10. LAMICTAL [Concomitant]
     Active Substance: LAMOTRIGINE
  11. VITAMIN D [Concomitant]
     Active Substance: CHOLECALCIFEROL
  12. LIDOCAINE PATCH 5% [Suspect]
     Active Substance: LIDOCAINE
     Indication: BACK PAIN
     Dosage: TRANSDERMAL 3 PATCHES 12 HR ON/12 HR OFF?
     Route: 062
     Dates: start: 20181005, end: 20181005
  13. ATROVENT [Concomitant]
     Active Substance: IPRATROPIUM BROMIDE
  14. FLONASE [Concomitant]
     Active Substance: FLUTICASONE PROPIONATE
  15. ROZEREM [Concomitant]
     Active Substance: RAMELTEON
  16. OXYCODONE [Concomitant]
     Active Substance: OXYCODONE
  17. MG [Concomitant]
     Active Substance: MAGNESIUM
  18. 8-PILL VITAMIN AND MI9NERAL PACK [Concomitant]
  19. FISH OIL [Concomitant]
     Active Substance: FISH OIL
  20. NITROGLYCERINE [Concomitant]
     Active Substance: NITROGLYCERIN
  21. DEXILANT [Concomitant]
     Active Substance: DEXLANSOPRAZOLE
  22. LACTULOSE. [Concomitant]
     Active Substance: LACTULOSE
  23. SR [Concomitant]
  24. VITAMIN B12 [Concomitant]
     Active Substance: CYANOCOBALAMIN
  25. CARVEDILOL. [Concomitant]
     Active Substance: CARVEDILOL
  26. CHONDRIOTIN [Concomitant]
  27. PROBIOTIC [Concomitant]
     Active Substance: PROBIOTICS NOS
  28. XYZAL [Concomitant]
     Active Substance: LEVOCETIRIZINE DIHYDROCHLORIDE
  29. MSM [Concomitant]
     Active Substance: DIMETHYL SULFONE

REACTIONS (4)
  - Product adhesion issue [None]
  - Inadequate analgesia [None]
  - Product substitution issue [None]
  - Product supply issue [None]

NARRATIVE: CASE EVENT DATE: 20181005
